FAERS Safety Report 6299401-9 (Version None)
Quarter: 2009Q3

REPORT INFORMATION
  Report Type: 
  Country: None (occurrence: None)
  Receive Date: 20090806
  Receipt Date: 20090728
  Transmission Date: 20100115
  Serious: Yes (Hospitalization, Other)
  Sender: FDA-Public Use
  Company Number: US-BAXTER-2009BH001330

PATIENT
  Age: 53 Year
  Sex: Male
  Weight: 67 kg

DRUGS (18)
  1. HEPARIN SODIUM INJECTION [Suspect]
     Indication: THROMBOSIS PROPHYLAXIS
     Route: 040
     Dates: start: 20071121, end: 20080601
  2. HEPARIN SODIUM INJECTION [Suspect]
     Route: 041
     Dates: start: 20071121, end: 20080601
  3. HEPARIN SODIUM INJECTION [Suspect]
     Route: 042
     Dates: start: 20080701
  4. PHOSLO [Concomitant]
     Indication: DRUG USE FOR UNKNOWN INDICATION
     Route: 048
     Dates: start: 20071012
  5. FELODIPINE [Concomitant]
     Indication: DRUG USE FOR UNKNOWN INDICATION
     Route: 048
     Dates: start: 20071012
  6. LEVOTHYROXINE [Concomitant]
     Indication: DRUG USE FOR UNKNOWN INDICATION
     Route: 048
     Dates: start: 20071012
  7. PROTONIX [Concomitant]
     Indication: DRUG USE FOR UNKNOWN INDICATION
     Route: 048
     Dates: start: 20071012
  8. LASIX [Concomitant]
     Indication: DRUG USE FOR UNKNOWN INDICATION
     Route: 048
     Dates: start: 20071012
  9. COZAAR [Concomitant]
     Indication: DRUG USE FOR UNKNOWN INDICATION
     Route: 048
     Dates: start: 20071012
  10. ASPIRIN [Concomitant]
     Indication: DRUG USE FOR UNKNOWN INDICATION
     Route: 048
     Dates: start: 20071012
  11. NIFEDIPINE [Concomitant]
     Indication: DRUG USE FOR UNKNOWN INDICATION
     Route: 048
     Dates: start: 20071012
  12. METOPROLOL SUCCINATE [Concomitant]
     Indication: DRUG USE FOR UNKNOWN INDICATION
     Route: 048
     Dates: start: 20071012
  13. QUINAPRIL [Concomitant]
     Indication: DRUG USE FOR UNKNOWN INDICATION
     Route: 048
     Dates: start: 20071012
  14. CLONIDINE [Concomitant]
     Indication: DRUG USE FOR UNKNOWN INDICATION
     Route: 048
     Dates: start: 20071012
  15. LISINOPRIL [Concomitant]
     Indication: DRUG USE FOR UNKNOWN INDICATION
     Route: 048
     Dates: start: 20071012
  16. FERRLECIT                               /USA/ [Concomitant]
     Indication: DRUG USE FOR UNKNOWN INDICATION
     Route: 042
     Dates: start: 20071012
  17. ZEMPLAR [Concomitant]
     Indication: DRUG USE FOR UNKNOWN INDICATION
     Route: 042
     Dates: start: 20071012
  18. EPOGEN [Concomitant]
     Indication: DRUG USE FOR UNKNOWN INDICATION
     Route: 042
     Dates: start: 20071012

REACTIONS (23)
  - ABDOMINAL PAIN [None]
  - ASTHENIA [None]
  - BLOOD PRESSURE DECREASED [None]
  - BURNING SENSATION [None]
  - CHEST DISCOMFORT [None]
  - CONVULSION [None]
  - DEHYDRATION [None]
  - DIALYSIS DISEQUILIBRIUM SYNDROME [None]
  - DIARRHOEA [None]
  - DIZZINESS [None]
  - FLUSHING [None]
  - HYPERSENSITIVITY [None]
  - HYPOAESTHESIA [None]
  - INFUSION SITE PAIN [None]
  - NAUSEA [None]
  - OEDEMA PERIPHERAL [None]
  - PARAESTHESIA [None]
  - RASH [None]
  - SHOCK [None]
  - SNEEZING [None]
  - SYNCOPE [None]
  - URTICARIA [None]
  - VOMITING [None]
